FAERS Safety Report 25241980 (Version 1)
Quarter: 2025Q2

REPORT INFORMATION
  Report Type: Spontaneous
  Country: US (occurrence: US)
  Receive Date: 20250426
  Receipt Date: 20250426
  Transmission Date: 20250717
  Serious: Yes (Other)
  Sender: Unknown Manufacturer
  Company Number: US-862174955-ML2025-01968

PATIENT
  Age: 68 Year
  Sex: Male

DRUGS (4)
  1. APIXABAN [Suspect]
     Active Substance: APIXABAN
     Indication: Embolic stroke
  2. APIXABAN [Suspect]
     Active Substance: APIXABAN
  3. APIXABAN [Suspect]
     Active Substance: APIXABAN
     Dosage: POST PROCEDURE
  4. ASPIRIN [Concomitant]
     Active Substance: ASPIRIN
     Indication: Antiplatelet therapy

REACTIONS (3)
  - Hemiparesis [Unknown]
  - Thalamus haemorrhage [Unknown]
  - Haemorrhage intracranial [Unknown]
